FAERS Safety Report 9404833 (Version 1)
Quarter: 2013Q3

REPORT INFORMATION
  Report Type: Report from Study
  Country: DE (occurrence: DE)
  Receive Date: 20130717
  Receipt Date: 20130717
  Transmission Date: 20140515
  Serious: Yes (Hospitalization, Other)
  Sender: FDA-Public Use
  Company Number: DE-TEVA-394370GER

PATIENT
  Age: 58 Year
  Sex: Female
  Weight: 75 kg

DRUGS (6)
  1. COPAXONE [Suspect]
     Indication: MULTIPLE SCLEROSIS
     Dosage: 20 MILLIGRAM DAILY;
     Route: 058
     Dates: start: 20061118
  2. AMITRIPTYLINE [Concomitant]
     Dosage: 100 MILLIGRAM DAILY;
  3. LYRICA [Concomitant]
     Dosage: 150 MILLIGRAM DAILY;
  4. MYDOCALM [Concomitant]
  5. BISOPROLOL [Concomitant]
  6. RAMIPRIL [Concomitant]

REACTIONS (2)
  - Colitis erosive [Recovered/Resolved]
  - Colitis ischaemic [Recovered/Resolved]
